FAERS Safety Report 7605058-4 (Version None)
Quarter: 2011Q3

REPORT INFORMATION
  Report Type: 
  Country: None (occurrence: None)
  Receive Date: 20110713
  Receipt Date: 20081203
  Transmission Date: 20111222
  Serious: Yes (Death)
  Sender: FDA-Public Use
  Company Number: US-BAYER-200830719NA

PATIENT
  Sex: Male
  Weight: 97.506 kg

DRUGS (41)
  1. GADOLINIUM IN UNSPECIFIED DRUG [Suspect]
     Indication: NUCLEAR MAGNETIC RESONANCE IMAGING BRAIN
     Dosage: UNK UNK, ONCE
     Dates: start: 20010503, end: 20010503
  2. GADOLINIUM IN UNSPECIFIED DRUG [Suspect]
     Dosage: UNK, ONCE
     Route: 042
     Dates: start: 20020730, end: 20020730
  3. GADOLINIUM IN UNSPECIFIED DRUG [Suspect]
     Dosage: UNK
     Route: 042
     Dates: start: 20021231, end: 20021231
  4. KETOCONAZOLE [Concomitant]
  5. HYDROXYZINE [Concomitant]
  6. ZITHROMAX [Concomitant]
  7. PROLEUKIN [Concomitant]
  8. MAGNEVIST [Suspect]
     Indication: NUCLEAR MAGNETIC RESONANCE IMAGING BRAIN
     Dosage: UNK, ONCE
     Dates: start: 20040809, end: 20040809
  9. GADOLINIUM IN UNSPECIFIED DRUG [Suspect]
     Dosage: UNK
     Dates: start: 20030902, end: 20030902
  10. OXYCODONE HCL [Concomitant]
  11. AMERGE [Concomitant]
  12. PHOSLO [Concomitant]
  13. PROCRIT [Concomitant]
  14. PREDNISONE [Concomitant]
  15. FAMOTIDINE [Concomitant]
  16. NEURONTIN [Concomitant]
  17. INDOMETHACIN [Concomitant]
  18. METOPROLOL TARTRATE [Concomitant]
  19. ZEMPLAR [Concomitant]
  20. GADOLINIUM IN UNSPECIFIED DRUG [Suspect]
     Dosage: UNK, ONCE
     Dates: start: 20011119, end: 20011119
  21. RENAGEL [Concomitant]
  22. SPIRONOLACTONE [Concomitant]
  23. FERRLECIT [Concomitant]
  24. GADOLINIUM IN UNSPECIFIED DRUG [Suspect]
     Dosage: UNK, ONCE
     Dates: start: 20010816, end: 20010816
  25. GADOLINIUM IN UNSPECIFIED DRUG [Suspect]
     Dosage: UNK, ONCE
     Route: 042
     Dates: start: 20020410, end: 20020410
  26. GADOLINIUM IN UNSPECIFIED DRUG [Suspect]
     Dosage: UNK, ONCE
     Route: 042
     Dates: start: 20030430, end: 20030430
  27. NASONEX [Concomitant]
  28. DEXAMETHASONE [Concomitant]
  29. FLUOXETINE [Concomitant]
  30. EPOGEN [Concomitant]
  31. ROXANOL [Concomitant]
  32. GADOLINIUM IN UNSPECIFIED DRUG [Suspect]
     Dosage: UNK, ONCE
     Route: 042
     Dates: start: 20031229, end: 20031229
  33. GADOLINIUM IN UNSPECIFIED DRUG [Suspect]
     Dosage: UNK
     Route: 042
     Dates: start: 20040413, end: 20040413
  34. OXYCODONE HCL AND ACETAMINOPHEN [Concomitant]
  35. VIOXX [Concomitant]
  36. DURAGESIC-100 [Concomitant]
  37. HYDROCORT [Concomitant]
  38. BUTORPHANOL TARATRATE [Concomitant]
  39. MAGNEVIST [Suspect]
     Indication: NUCLEAR MAGNETIC RESONANCE IMAGING
     Dosage: 20 ML, ONCE
     Dates: start: 20040425, end: 20040425
  40. OXYCONTIN [Concomitant]
  41. LEVAQUIN [Concomitant]

REACTIONS (17)
  - INJURY [None]
  - GENERAL PHYSICAL HEALTH DETERIORATION [None]
  - EMOTIONAL DISTRESS [None]
  - FIBROSIS [None]
  - MENTAL DISORDER [None]
  - STRESS [None]
  - SKIN FIBROSIS [None]
  - SKIN SWELLING [None]
  - DEPRESSION [None]
  - SKIN HYPERTROPHY [None]
  - NEPHROGENIC SYSTEMIC FIBROSIS [None]
  - ANXIETY [None]
  - ANHEDONIA [None]
  - MOBILITY DECREASED [None]
  - SKIN INDURATION [None]
  - PAIN [None]
  - JOINT STIFFNESS [None]
